FAERS Safety Report 5731805-2 (Version None)
Quarter: 2008Q2

REPORT INFORMATION
  Report Type: 
  Country: None (occurrence: None)
  Receive Date: 20080506
  Receipt Date: 20080506
  Transmission Date: 20081010
  Serious: Yes (Hospitalization)
  Sender: FDA-Public Use
  Company Number: None

PATIENT
  Age: 60 Year
  Sex: Male

DRUGS (1)
  1. GLIPIZIDE [Suspect]
     Dosage: 2.5 MG AM PO
     Route: 048
     Dates: start: 20031028, end: 20080204

REACTIONS (9)
  - ABNORMAL BEHAVIOUR [None]
  - AGITATION [None]
  - CONFUSIONAL STATE [None]
  - HALLUCINATION [None]
  - HYPOGLYCAEMIA [None]
  - MENTAL STATUS CHANGES [None]
  - RENAL IMPAIRMENT [None]
  - TREATMENT NONCOMPLIANCE [None]
  - WEIGHT DECREASED [None]
